FAERS Safety Report 12972980 (Version 2)
Quarter: 2016Q4

REPORT INFORMATION
  Report Type: Spontaneous
  Country: US (occurrence: US)
  Receive Date: 20161124
  Receipt Date: 20161128
  Transmission Date: 20170207
  Serious: No
  Sender: FDA-Public Use
  Company Number: US-PFIZER INC-2016547046

PATIENT
  Age: 40 Year
  Sex: Female
  Weight: 84 kg

DRUGS (5)
  1. OXYCONTIN [Concomitant]
     Active Substance: OXYCODONE HYDROCHLORIDE
     Indication: PAIN
     Dosage: 40 MG, 3X/DAY
     Route: 048
     Dates: start: 201410
  2. NEURONTIN [Suspect]
     Active Substance: GABAPENTIN
     Indication: NERVE INJURY
     Dosage: 800 MG, 3X/DAY
     Route: 048
     Dates: start: 201410
  3. OXYCODONE [Concomitant]
     Active Substance: OXYCODONE
     Dosage: 75 MG (15MG UP TO 5 PILLS A DAY), AS NEEDED
     Route: 048
     Dates: start: 201410
  4. THERMACARE HEATWRAPS [Concomitant]
     Active Substance: ACTIVATED CHARCOAL\IRON\SODIUM
     Indication: BACK INJURY
  5. OXYCODONE [Concomitant]
     Active Substance: OXYCODONE
     Indication: PAIN
     Dosage: 15 MG, AS NEEDED
     Route: 048
     Dates: start: 201410

REACTIONS (4)
  - Drug ineffective for unapproved indication [Unknown]
  - Inflammation [Unknown]
  - Neuralgia [Unknown]
  - Condition aggravated [Unknown]
